FAERS Safety Report 4302560-8 (Version None)
Quarter: 2004Q1

REPORT INFORMATION
  Report Type: 
  Country: None (occurrence: None)
  Receive Date: 20040220
  Receipt Date: 20040129
  Transmission Date: 20041129
  Serious: Yes (Other)
  Sender: FDA-Public Use
  Company Number: A03200400316

PATIENT
  Age: 67 Year
  Sex: Female

DRUGS (1)
  1. AMBIEN [Suspect]
     Dosage: 10 MG HS - ORAL
     Route: 048

REACTIONS (20)
  - ABNORMAL BEHAVIOUR [None]
  - AFFECT LABILITY [None]
  - AGITATION [None]
  - CONFUSIONAL STATE [None]
  - DECREASED APPETITE [None]
  - DELIRIUM [None]
  - DELUSION [None]
  - DISTURBANCE IN ATTENTION [None]
  - FEAR [None]
  - FLIGHT OF IDEAS [None]
  - INSOMNIA [None]
  - MANIA [None]
  - PARANOIA [None]
  - PRESSURE OF SPEECH [None]
  - PSYCHIATRIC SYMPTOM [None]
  - RESTLESSNESS [None]
  - SPEECH DISORDER [None]
  - SUSPICIOUSNESS [None]
  - THINKING ABNORMAL [None]
  - THOUGHT BROADCASTING [None]
